FAERS Safety Report 7482483-6 (Version None)
Quarter: 2011Q2

REPORT INFORMATION
  Report Type: 
  Country: None (occurrence: None)
  Receive Date: 20110516
  Receipt Date: 20110503
  Transmission Date: 20111010
  Serious: Yes (Hospitalization, Other)
  Sender: FDA-Public Use
  Company Number: FR-UCBSA-019724

PATIENT
  Sex: Female
  Weight: 67 kg

DRUGS (2)
  1. FOLIC ACID [Concomitant]
     Route: 048
     Dates: start: 20100601
  2. KEPPRA [Suspect]
     Indication: MYOCLONIC EPILEPSY
     Route: 048
     Dates: start: 20100301

REACTIONS (4)
  - DRUG EXPOSURE DURING PREGNANCY [None]
  - ABORTION [None]
  - TWIN PREGNANCY [None]
  - LIVER FUNCTION TEST ABNORMAL [None]
